FAERS Safety Report 8746310 (Version 2)
Quarter: 2012Q4

REPORT INFORMATION
  Report Type: 
  Country: AR (occurrence: AR)
  Receive Date: 20120827
  Receipt Date: 20120829
  Transmission Date: 20130627
  Serious: Yes (Other)
  Sender: FDA-Public Use
  Company Number: AR-AMGEN-ARGSP2012051892

PATIENT
  Age: 76 Year
  Sex: Male

DRUGS (2)
  1. ENBREL [Suspect]
     Indication: PSORIATIC ARTHROPATHY
     Dosage: 25 mg, 2x/week
     Route: 058
     Dates: start: 20110228, end: 201204
  2. ENBREL [Suspect]
     Dosage: UNK
     Dates: start: 201208

REACTIONS (2)
  - Asthma [Recovered/Resolved]
  - Oedema peripheral [Recovering/Resolving]
